FAERS Safety Report 5524154-9 (Version None)
Quarter: 2007Q4

REPORT INFORMATION
  Report Type: 
  Country: None (occurrence: None)
  Receive Date: 20071121
  Receipt Date: 20071112
  Transmission Date: 20080405
  Serious: Yes (Other)
  Sender: FDA-Public Use
  Company Number: PL-PFIZER INC-2007095420

PATIENT
  Sex: Male
  Weight: 108.2 kg

DRUGS (4)
  1. CHAMPIX [Suspect]
     Route: 048
     Dates: start: 20071103, end: 20071107
  2. ENARENAL [Concomitant]
     Route: 048
  3. OLANZAPINE [Concomitant]
     Route: 048
  4. NIQUITIN [Concomitant]
     Route: 062

REACTIONS (10)
  - APHASIA [None]
  - DISSOCIATION [None]
  - DYSPHEMIA [None]
  - FEELING ABNORMAL [None]
  - FEELING OF BODY TEMPERATURE CHANGE [None]
  - HYPERTENSION [None]
  - HYPOAESTHESIA [None]
  - HYPOAESTHESIA FACIAL [None]
  - IMPAIRED DRIVING ABILITY [None]
  - JOINT ANKYLOSIS [None]
